FAERS Safety Report 9373286 (Version 1)
Quarter: 2013Q2

REPORT INFORMATION
  Report Type: Spontaneous
  Country: US (occurrence: US)
  Receive Date: 20130627
  Receipt Date: 20130627
  Transmission Date: 20140414
  Serious: Yes (Other)
  Sender: FDA-Public Use
  Company Number: CHPA2013US010337

PATIENT
  Age: 85 Year
  Sex: Female

DRUGS (1)
  1. VOLTAREN GEL [Suspect]
     Indication: ARTHRITIS
     Dosage: 2 G, QD
     Route: 061
     Dates: start: 20130313

REACTIONS (2)
  - Pneumonia [Recovering/Resolving]
  - Drug administered at inappropriate site [Unknown]
